FAERS Safety Report 8131488-0 (Version None)
Quarter: 2012Q1

REPORT INFORMATION
  Report Type: 
  Country: None (occurrence: None)
  Receive Date: 20120208
  Receipt Date: 20120118
  Transmission Date: 20120608
  Serious: Yes (Hospitalization, Other)
  Sender: FDA-Public Use
  Company Number: 2011PROUSA00879

PATIENT
  Age: 56 Year
  Sex: Male
  Weight: 98.8 kg

DRUGS (11)
  1. 3)	HYDROCODONE/ACETAMINOPHEN /00607101/ (HYDROCODONE BITARTRATE, PARAC [Concomitant]
  2. QUINAPRIL HCL [Concomitant]
  3. TAURINE (TAURINE) [Concomitant]
  4. PROVENGE [Suspect]
     Indication: PROSTATE CANCER METASTATIC
     Dosage: 250ML, SINGLE, INTRAVENOUS ; 250ML, SINGLE, INTRAVENOUS
     Route: 042
     Dates: start: 20111121, end: 20111121
  5. PROVENGE [Suspect]
     Indication: PROSTATE CANCER METASTATIC
     Dosage: 250ML, SINGLE, INTRAVENOUS ; 250ML, SINGLE, INTRAVENOUS
     Route: 042
     Dates: start: 20111205, end: 20111205
  6. ACTOS [Concomitant]
  7. MULTIVITAMINS (ASCORBIC ACID, ERGOCALCIFEROL, FOLIC ACID, NICOTINAMIDE [Concomitant]
  8. CALCIUM CARBONATE [Concomitant]
  9. FOLIC ACID [Concomitant]
  10. FISH OIL (FISH OIL) [Concomitant]
  11. UBIQUINOL (UBIQUINOL) [Concomitant]

REACTIONS (13)
  - BACK PAIN [None]
  - RENAL IMPAIRMENT [None]
  - NAUSEA [None]
  - INFREQUENT BOWEL MOVEMENTS [None]
  - HYPERCALCAEMIA OF MALIGNANCY [None]
  - MUSCLE TWITCHING [None]
  - MUSCULOSKELETAL PAIN [None]
  - VOMITING [None]
  - MENTAL STATUS CHANGES [None]
  - DISEASE PROGRESSION [None]
  - HUMERUS FRACTURE [None]
  - HYPOKALAEMIA [None]
  - WEIGHT DECREASED [None]
